FAERS Safety Report 4828247-0 (Version None)
Quarter: 2005Q4

REPORT INFORMATION
  Report Type: 
  Country: None (occurrence: None)
  Receive Date: 20051115
  Receipt Date: 20050711
  Transmission Date: 20060501
  Serious: No
  Sender: FDA-Public Use
  Company Number: US-BRISTOL-MYERS SQUIBB COMPANY-13032438

PATIENT
  Sex: Male

DRUGS (11)
  1. SUSTIVA [Suspect]
     Dates: start: 20040509
  2. MONOPRIL [Concomitant]
  3. ATENOLOL [Concomitant]
  4. PROVIGIL [Concomitant]
  5. NAMENDA [Concomitant]
  6. PROSCAR [Concomitant]
  7. TRAZODONE HCL [Concomitant]
  8. WELLBUTRIN [Concomitant]
  9. LEVITRA [Concomitant]
  10. SYNTHROID [Concomitant]
  11. KLONOPIN [Concomitant]

REACTIONS (1)
  - HYPERTENSION [None]
